FAERS Safety Report 4367460-6 (Version None)
Quarter: 2004Q2

REPORT INFORMATION
  Report Type: 
  Country: None (occurrence: None)
  Receive Date: 20040528
  Receipt Date: 20040329
  Transmission Date: 20050107
  Serious: Yes (Hospitalization)
  Sender: FDA-Public Use
  Company Number: CIP04000205

PATIENT
  Age: 56 Year
  Sex: Female
  Weight: 65.8 kg

DRUGS (3)
  1. ACTONEL [Suspect]
     Indication: OSTEOPENIA
     Dosage: 35 MG, 1 ONLY, ORAL
     Route: 048
  2. ESTROGEN NOS [Concomitant]
  3. PRILOSEC [Concomitant]

REACTIONS (7)
  - BACK PAIN [None]
  - CHEST PAIN [None]
  - DYSPEPSIA [None]
  - DYSPNOEA [None]
  - GASTRIC DISORDER [None]
  - GASTRIC ULCER [None]
  - PAIN [None]
